FAERS Safety Report 17618578 (Version 1)
Quarter: 2020Q2

REPORT INFORMATION
  Report Type: Spontaneous
  Country: US (occurrence: US)
  Receive Date: 20200402
  Receipt Date: 20200402
  Transmission Date: 20200713
  Serious: Yes (Other)
  Sender: FDA-Public Use
  Company Number: US-LUNDBECK-DKLU3014905

PATIENT
  Age: 84 Year
  Sex: Male

DRUGS (1)
  1. NORTHERA [Suspect]
     Active Substance: DROXIDOPA
     Indication: END STAGE RENAL DISEASE
     Route: 048
     Dates: start: 20191205

REACTIONS (2)
  - Haemodialysis [Not Recovered/Not Resolved]
  - Off label use [Unknown]
